FAERS Safety Report 10156813 (Version 2)
Quarter: 2014Q2

REPORT INFORMATION
  Report Type: Spontaneous
  Country: US (occurrence: US)
  Receive Date: 20140507
  Receipt Date: 20140507
  Transmission Date: 20141212
  Serious: Yes (Other)
  Sender: FDA-Public Use
  Company Number: US-IAC KOREA XML-USA-2014-0112612

PATIENT
  Age: 53 Year
  Sex: Female
  Weight: 145.13 kg

DRUGS (1)
  1. BUTRANS [Suspect]
     Indication: PAIN
     Dosage: 20 MCG/HR, WEEKLY
     Route: 062
     Dates: start: 20120831, end: 20140401

REACTIONS (2)
  - Swollen tongue [Recovered/Resolved]
  - Application site pruritus [Recovered/Resolved]
